FAERS Safety Report 22242392 (Version 1)
Quarter: 2023Q2

REPORT INFORMATION
  Report Type: Spontaneous
  Country: BR (occurrence: BR)
  Receive Date: 20230422
  Receipt Date: 20230422
  Transmission Date: 20230721
  Serious: Yes (Other)
  Sender: FDA-Public Use
  Company Number: BR-AMGEN-BRASP2023063277

PATIENT
  Age: 63 Year
  Sex: Female
  Weight: 64 kg

DRUGS (9)
  1. KANJINTI [Suspect]
     Active Substance: TRASTUZUMAB-ANNS
     Indication: Breast cancer metastatic
     Dosage: 420 MILLIGRAM
     Route: 065
  2. RALOXIFENE [Concomitant]
     Active Substance: RALOXIFENE
  3. CLIFEMIN [Concomitant]
  4. CALCIUM CARBONATE\CHOLECALCIFEROL [Concomitant]
     Active Substance: CALCIUM CARBONATE\CHOLECALCIFEROL
  5. INDAPAMIDE [Concomitant]
     Active Substance: INDAPAMIDE
  6. VENZER [Concomitant]
  7. PERTUZUMAB [Concomitant]
     Active Substance: PERTUZUMAB
  8. CARBOPLATIN [Concomitant]
     Active Substance: CARBOPLATIN
  9. DOCETAXEL [Concomitant]
     Active Substance: DOCETAXEL

REACTIONS (4)
  - Seizure [Unknown]
  - Diarrhoea [Unknown]
  - Asthenia [Unknown]
  - Off label use [Unknown]

NARRATIVE: CASE EVENT DATE: 20230401
